FAERS Safety Report 7815365-8 (Version None)
Quarter: 2011Q4

REPORT INFORMATION
  Report Type: 
  Country: None (occurrence: None)
  Receive Date: 20111014
  Receipt Date: 20111007
  Transmission Date: 20120403
  Serious: Yes (Death, Other)
  Sender: FDA-Public Use
  Company Number: DE-GENZYME-CAMP-1001942

PATIENT
  Age: 42 Year

DRUGS (10)
  1. CARMUSTINE [Concomitant]
     Indication: PRODUCT USED FOR UNKNOWN INDICATION
     Dosage: UNK
  2. CYCLOSPORINE [Concomitant]
     Indication: PRODUCT USED FOR UNKNOWN INDICATION
     Dosage: UNK
  3. SULPHAMETHOXAZOLE [Concomitant]
     Indication: PRODUCT USED FOR UNKNOWN INDICATION
     Dosage: UNK
  4. FLUDARA [Concomitant]
     Indication: PRODUCT USED FOR UNKNOWN INDICATION
     Dosage: UNK
  5. TRIMETHOPRIM [Concomitant]
     Indication: PRODUCT USED FOR UNKNOWN INDICATION
     Dosage: UNK
  6. ACYCLOVIR [Concomitant]
     Indication: PRODUCT USED FOR UNKNOWN INDICATION
     Dosage: UNK
  7. CAMPATH [Suspect]
     Indication: PRODUCT USED FOR UNKNOWN INDICATION
     Dosage: UNK
     Route: 065
  8. MELPHALAN HYDROCHLORIDE [Concomitant]
     Indication: PRODUCT USED FOR UNKNOWN INDICATION
     Dosage: UNK
  9. MYCOPHENOLATE MOFETIL [Concomitant]
     Indication: PRODUCT USED FOR UNKNOWN INDICATION
     Dosage: UNK
  10. FLUCONAZOLE [Concomitant]
     Indication: PRODUCT USED FOR UNKNOWN INDICATION
     Dosage: UNK

REACTIONS (9)
  - CYTOMEGALOVIRUS INFECTION [None]
  - CHRONIC GRAFT VERSUS HOST DISEASE [None]
  - ERYTHEMA INFECTIOSUM [None]
  - ORGANISING PNEUMONIA [None]
  - PNEUMONIA RESPIRATORY SYNCYTIAL VIRAL [None]
  - ACUTE RESPIRATORY DISTRESS SYNDROME [None]
  - ACUTE GRAFT VERSUS HOST DISEASE [None]
  - SYSTEMIC INFLAMMATORY RESPONSE SYNDROME [None]
  - DEATH [None]
